FAERS Safety Report 20124288 (Version 1)
Quarter: 2021Q4

REPORT INFORMATION
  Report Type: Spontaneous
  Country: US (occurrence: US)
  Receive Date: 20211129
  Receipt Date: 20211129
  Transmission Date: 20220303
  Serious: Yes (Other)
  Sender: FDA-Public Use
  Company Number: US-GLAXOSMITHKLINE-US2021GSK244318

PATIENT
  Sex: Female

DRUGS (21)
  1. ZANTAC [Suspect]
     Active Substance: RANITIDINE HYDROCHLORIDE
     Indication: Dyspepsia
     Dosage: 75 MG, 1 - 2 TIMES A DAY
     Route: 065
     Dates: start: 201512, end: 201712
  2. ZANTAC [Suspect]
     Active Substance: RANITIDINE HYDROCHLORIDE
     Dosage: 150 MG, 1 - 2 TIMES A DAY
     Route: 065
     Dates: start: 201512, end: 201712
  3. ZANTAC [Suspect]
     Active Substance: RANITIDINE HYDROCHLORIDE
     Dosage: 300 MG, QD
     Route: 065
     Dates: start: 201512, end: 201712
  4. ZANTAC [Suspect]
     Active Substance: RANITIDINE HYDROCHLORIDE
     Indication: Dyspepsia
     Dosage: 75 MG, 1 - 2 TIMES A DAY
     Route: 065
     Dates: start: 201512, end: 201712
  5. ZANTAC [Suspect]
     Active Substance: RANITIDINE HYDROCHLORIDE
     Dosage: 150 MG, 1 - 2 TIMES A DAY
     Route: 065
     Dates: start: 201512, end: 201712
  6. ZANTAC [Suspect]
     Active Substance: RANITIDINE HYDROCHLORIDE
     Dosage: 300 MG, QD
     Route: 065
     Dates: start: 201512, end: 201712
  7. ZANTAC [Suspect]
     Active Substance: RANITIDINE HYDROCHLORIDE
     Indication: Dyspepsia
     Dosage: 75 MG, 1 - 2 TIMES A DAY
     Route: 065
     Dates: start: 201512, end: 201712
  8. ZANTAC [Suspect]
     Active Substance: RANITIDINE HYDROCHLORIDE
     Dosage: 150 MG, 1 - 2 TIMES A DAY
     Route: 065
     Dates: start: 201512, end: 201712
  9. ZANTAC [Suspect]
     Active Substance: RANITIDINE HYDROCHLORIDE
     Dosage: 300 MG, QD
     Route: 065
     Dates: start: 201512, end: 201712
  10. RANITIDINE [Suspect]
     Active Substance: RANITIDINE
     Indication: Dyspepsia
     Dosage: 75 MG, 1 - 2 TIMES A DAY
     Route: 065
     Dates: start: 201512, end: 201712
  11. RANITIDINE [Suspect]
     Active Substance: RANITIDINE
     Dosage: 150 MG, 1 - 2 TIMES A DAY
     Route: 065
     Dates: start: 201512, end: 201712
  12. RANITIDINE [Suspect]
     Active Substance: RANITIDINE
     Dosage: 300 MG, QD
     Route: 065
     Dates: start: 201512, end: 201712
  13. RANITIDINE HYDROCHLORIDE [Suspect]
     Active Substance: RANITIDINE HYDROCHLORIDE
     Indication: Dyspepsia
     Dosage: 75 MG, 1 - 2 TIMES A DAY
     Route: 065
     Dates: start: 201512, end: 201712
  14. RANITIDINE HYDROCHLORIDE [Suspect]
     Active Substance: RANITIDINE HYDROCHLORIDE
     Dosage: 150 UNK, 1 - 2 TIMES A DAY
     Route: 065
     Dates: start: 201512, end: 201712
  15. RANITIDINE HYDROCHLORIDE [Suspect]
     Active Substance: RANITIDINE HYDROCHLORIDE
     Dosage: 300 MG, QD
     Route: 065
     Dates: start: 201512, end: 201712
  16. RANITIDINE HYDROCHLORIDE [Suspect]
     Active Substance: RANITIDINE HYDROCHLORIDE
     Indication: Dyspepsia
     Dosage: 75 MG, 1 - 2 TIMES A DAY
     Route: 065
     Dates: start: 201512, end: 201712
  17. RANITIDINE HYDROCHLORIDE [Suspect]
     Active Substance: RANITIDINE HYDROCHLORIDE
     Dosage: 150 MG, 1 - 2 TIMES A DAY
     Route: 065
     Dates: start: 201512, end: 201712
  18. RANITIDINE HYDROCHLORIDE [Suspect]
     Active Substance: RANITIDINE HYDROCHLORIDE
     Dosage: 300 MG, QD
     Route: 065
     Dates: start: 201512, end: 201712
  19. RANITIDINE [Suspect]
     Active Substance: RANITIDINE
     Indication: Dyspepsia
     Dosage: 75 MG, 1 - 2 TIMES A DAY
     Route: 065
     Dates: start: 201512, end: 201712
  20. RANITIDINE [Suspect]
     Active Substance: RANITIDINE
     Dosage: 150 MG, 1 - 2 TIMES A DAY
     Route: 065
     Dates: start: 201512, end: 201712
  21. RANITIDINE [Suspect]
     Active Substance: RANITIDINE
     Dosage: 300 MG, QD
     Route: 065
     Dates: start: 201512, end: 201712

REACTIONS (1)
  - Hepatic cancer [Unknown]
